FAERS Safety Report 6993187-8 (Version None)
Quarter: 2010Q3

REPORT INFORMATION
  Report Type: 
  Country: None (occurrence: None)
  Receive Date: 20100917
  Receipt Date: 20100330
  Transmission Date: 20110219
  Serious: Yes (Other)
  Sender: FDA-Public Use
  Company Number: US-ASTRAZENECA-2006UW07616

PATIENT
  Age: 34 Year
  Sex: Male
  Weight: 77.1 kg

DRUGS (27)
  1. SEROQUEL [Suspect]
     Indication: DEPRESSION
     Dosage: 100-200MG
     Route: 048
     Dates: start: 20030101, end: 20050101
  2. SEROQUEL [Suspect]
     Indication: BIPOLAR DISORDER
     Dosage: 100-200MG
     Route: 048
     Dates: start: 20030101, end: 20050101
  3. SEROQUEL [Suspect]
     Indication: SLEEP DISORDER
     Dosage: 100-200MG
     Route: 048
     Dates: start: 20030101, end: 20050101
  4. SEROQUEL [Suspect]
     Dosage: 100 - 300 MG
     Route: 048
     Dates: start: 20030305
  5. SEROQUEL [Suspect]
     Dosage: 100 - 300 MG
     Route: 048
     Dates: start: 20030305
  6. SEROQUEL [Suspect]
     Dosage: 100 - 300 MG
     Route: 048
     Dates: start: 20030305
  7. SEROQUEL [Suspect]
     Route: 048
     Dates: start: 20030130
  8. SEROQUEL [Suspect]
     Route: 048
     Dates: start: 20030130
  9. SEROQUEL [Suspect]
     Route: 048
     Dates: start: 20030130
  10. ZYPREXA [Suspect]
     Indication: AGITATION
     Dosage: STRENGTH 2.5 MG, 7.5 MG
     Dates: start: 20010101, end: 20030101
  11. ZYPREXA [Suspect]
     Indication: DEPRESSION
     Dosage: STRENGTH 2.5 MG, 7.5 MG
     Dates: start: 20010101, end: 20030101
  12. ZYPREXA [Suspect]
     Indication: BIPOLAR DISORDER
     Dosage: STRENGTH 2.5 MG, 7.5 MG
     Dates: start: 20010101, end: 20030101
  13. GEODON [Concomitant]
     Dates: start: 20050101
  14. GEODON [Concomitant]
  15. RISPERDAL [Concomitant]
     Indication: DEPRESSION
     Dates: start: 20050701
  16. RISPERDAL [Concomitant]
     Indication: BIPOLAR DISORDER
     Dates: start: 20050701
  17. NAPROXEN [Concomitant]
     Dates: start: 20020808
  18. WELLBUTRIN [Concomitant]
     Dosage: STRENGTH 150 MG, 300 MG.  DOSE 300 MG DAILY
     Dates: start: 20020607
  19. DEPAKOTE [Concomitant]
     Dosage: STRENGTH 5 MG, 250 MG, 500 MG AND 2000 MG.  DOSE 1500 MG AT NIGHT.
     Dates: start: 20020504
  20. ATIVAN [Concomitant]
     Indication: INSOMNIA
     Route: 042
  21. ATIVAN [Concomitant]
     Indication: AGITATION
     Route: 042
  22. ATIVAN [Concomitant]
     Indication: ANXIETY
     Route: 042
  23. TEMAZEPAM [Concomitant]
     Indication: INSOMNIA
     Route: 048
  24. TRAZODONE HCL [Concomitant]
     Dosage: 75 MG - 100 MG
  25. PAROXETINE HCL [Concomitant]
     Dosage: 40 MG - 80 MG
     Route: 048
  26. ALUMINIUM/ MAGNESIUM ANTACID SUSPENSION [Concomitant]
     Indication: DYSPEPSIA
     Dosage: DOSE 30 ML
     Route: 048
  27. MAGNESIUM HYDROXIDE (MOM) [Concomitant]
     Indication: CONSTIPATION
     Route: 048

REACTIONS (6)
  - DIABETES MELLITUS INADEQUATE CONTROL [None]
  - HYPERGLYCAEMIA [None]
  - NEUROLEPTIC MALIGNANT SYNDROME [None]
  - TARDIVE DYSKINESIA [None]
  - TYPE 1 DIABETES MELLITUS [None]
  - TYPE 2 DIABETES MELLITUS [None]
